FAERS Safety Report 21886960 (Version 1)
Quarter: 2023Q1

REPORT INFORMATION
  Report Type: Spontaneous
  Country: ES (occurrence: ES)
  Receive Date: 20230119
  Receipt Date: 20230119
  Transmission Date: 20230418
  Serious: Yes (Other)
  Sender: FDA-Public Use
  Company Number: ES-JAZZ-2023-ES-001232

PATIENT
  Age: 22 Year
  Sex: Female

DRUGS (1)
  1. XYREM [Suspect]
     Active Substance: SODIUM OXYBATE
     Indication: Narcolepsy
     Dosage: UNK
     Route: 065

REACTIONS (4)
  - Cataplexy [Unknown]
  - Dizziness [Unknown]
  - Logorrhoea [Unknown]
  - Feeling drunk [Unknown]
